FAERS Safety Report 4385345-6 (Version None)
Quarter: 2004Q2

REPORT INFORMATION
  Report Type: 
  Country: None (occurrence: None)
  Receive Date: 20040628
  Receipt Date: 20040212
  Transmission Date: 20050107
  Serious: Yes (Death)
  Sender: FDA-Public Use
  Company Number: PHHO2004ES02292

PATIENT
  Age: 44 Year
  Sex: Male

DRUGS (1)
  1. NEORAL [Suspect]
     Indication: LIVER TRANSPLANT
     Dosage: 150 MG / DAY
     Route: 048
     Dates: start: 20000609

REACTIONS (3)
  - LUNG NEOPLASM MALIGNANT [None]
  - MALIGNANT PLEURAL EFFUSION [None]
  - PLEURAL EFFUSION [None]
